FAERS Safety Report 6344180-X (Version None)
Quarter: 2009Q3

REPORT INFORMATION
  Report Type: 
  Country: None (occurrence: None)
  Receive Date: 20090908
  Receipt Date: 20090901
  Transmission Date: 20100115
  Serious: Yes (Life-Threatening, Other)
  Sender: FDA-Public Use
  Company Number: CN-AVENTIS-200919755GDDC

PATIENT
  Age: 57 Year
  Sex: Female
  Weight: 70 kg

DRUGS (5)
  1. AMARYL [Suspect]
     Route: 048
     Dates: start: 20090825, end: 20090830
  2. MOXIFLOXACIN HCL [Concomitant]
     Route: 042
     Dates: start: 20090813
  3. AZITHROMYCIN [Concomitant]
     Route: 048
     Dates: start: 20090813
  4. CETIRIZINE HYDROCHLORIDE [Concomitant]
     Route: 048
     Dates: start: 20090828, end: 20090901
  5. CLARITHROMYCIN [Concomitant]
     Route: 048
     Dates: start: 20090828, end: 20090901

REACTIONS (3)
  - ECCHYMOSIS [None]
  - THROMBOCYTOPENIA [None]
  - WHITE BLOOD CELL COUNT INCREASED [None]
